FAERS Safety Report 6555780-6 (Version None)
Quarter: 2010Q1

REPORT INFORMATION
  Report Type: 
  Country: None (occurrence: None)
  Receive Date: 20100128
  Receipt Date: 20100119
  Transmission Date: 20100710
  Serious: Yes (Other)
  Sender: FDA-Public Use
  Company Number: NL-BAYER-201012441GPV

PATIENT
  Age: 79 Year
  Sex: Female

DRUGS (6)
  1. NEXAVAR [Suspect]
     Indication: HEPATIC CANCER METASTATIC
     Dosage: TOTAL DAILY DOSE: 800 MG  UNIT DOSE: 200 MG
     Route: 048
     Dates: start: 20091223, end: 20100107
  2. NEXAVAR [Suspect]
     Dosage: TOTAL DAILY DOSE: 400 MG  UNIT DOSE: 200 MG
     Route: 048
     Dates: start: 20100113
  3. SOTALOL [Concomitant]
     Indication: ARRHYTHMIA
     Route: 048
  4. FUROSEMIDE [Concomitant]
     Indication: OEDEMA PERIPHERAL
     Dosage: 20 MG; STARTED BEFORE NOS
     Route: 048
  5. MOVICOL [Concomitant]
     Indication: CONSTIPATION
     Dosage: NOT STARTED NOS
  6. METOCLOPRAMIDE [Concomitant]
     Indication: NAUSEA
     Route: 048
     Dates: start: 20100101

REACTIONS (6)
  - EPISTAXIS [None]
  - NAUSEA [None]
  - PALMAR-PLANTAR ERYTHRODYSAESTHESIA SYNDROME [None]
  - PALPITATIONS [None]
  - RASH [None]
  - STOMATITIS [None]
